FAERS Safety Report 7381778-4 (Version None)
Quarter: 2011Q1

REPORT INFORMATION
  Report Type: 
  Country: None (occurrence: None)
  Receive Date: 20110329
  Receipt Date: 20101019
  Transmission Date: 20110831
  Serious: Yes (Hospitalization)
  Sender: FDA-Public Use
  Company Number: US-BAYER-201033949NA

PATIENT
  Sex: Female
  Weight: 149.66 kg

DRUGS (9)
  1. OCELLA [Suspect]
     Dosage: UNK UNK, UNK
     Route: 048
     Dates: start: 20050101, end: 20060101
  2. NSAID'S [Concomitant]
  3. METFORMIN HCL [Concomitant]
  4. FUROSEMIDE [Concomitant]
  5. YASMIN [Suspect]
     Dosage: UNK UNK, UNK
     Route: 048
     Dates: start: 20050101, end: 20060101
  6. METOPROLOL TARTRATE [Concomitant]
  7. POTASSIUM [POTASSIUM] [Concomitant]
  8. YAZ [Suspect]
     Dosage: UNK UNK, UNK
     Route: 048
     Dates: start: 20050101, end: 20060101
  9. IRON [FERROUS SULFATE] [Concomitant]

REACTIONS (2)
  - PAIN [None]
  - PULMONARY EMBOLISM [None]
